FAERS Safety Report 5000784-8 (Version None)
Quarter: 2006Q2

REPORT INFORMATION
  Report Type: 
  Country: None (occurrence: None)
  Receive Date: 20060512
  Receipt Date: 20051115
  Transmission Date: 20061013
  Serious: Yes (Hospitalization)
  Sender: FDA-Public Use
  Company Number: US-MERCK-0511USA02553

PATIENT
  Age: 59 Year
  Sex: Male
  Weight: 100 kg

DRUGS (5)
  1. VIOXX [Suspect]
     Indication: ARTHRALGIA
     Route: 048
     Dates: start: 20000101, end: 20040101
  2. PREVACID [Concomitant]
     Indication: GASTROOESOPHAGEAL REFLUX DISEASE
     Route: 065
  3. ZANTAC [Concomitant]
     Indication: GASTROOESOPHAGEAL REFLUX DISEASE
     Route: 065
  4. PRILOSEC [Concomitant]
     Route: 065
  5. VALTREX [Concomitant]
     Indication: HERPES VIRUS INFECTION
     Route: 065

REACTIONS (16)
  - BURNING SENSATION [None]
  - CHEST PAIN [None]
  - CONDITION AGGRAVATED [None]
  - COSTOCHONDRITIS [None]
  - DEEP VEIN THROMBOSIS [None]
  - DRY SKIN [None]
  - DYSPNOEA [None]
  - GASTROOESOPHAGEAL REFLUX DISEASE [None]
  - HAEMATURIA [None]
  - HAEMORRHOIDAL HAEMORRHAGE [None]
  - PAIN IN EXTREMITY [None]
  - PARAESTHESIA [None]
  - POST PROCEDURAL COMPLICATION [None]
  - SHOULDER PAIN [None]
  - SKIN LESION [None]
  - SPINAL FUSION SURGERY [None]
